FAERS Safety Report 10364674 (Version 1)
Quarter: 2014Q3

REPORT INFORMATION
  Report Type: Report from Study
  Country: BR (occurrence: BR)
  Receive Date: 20140806
  Receipt Date: 20140806
  Transmission Date: 20150326
  Serious: Yes (Other)
  Sender: FDA-Public Use
  Company Number: PHHY2014BR095732

PATIENT
  Sex: Female

DRUGS (1)
  1. GILENYA [Suspect]
     Active Substance: FINGOLIMOD HYDROCHLORIDE
     Indication: MULTIPLE SCLEROSIS
     Dosage: 0.5 MG, PER DAY
     Dates: start: 20131220, end: 20140530

REACTIONS (3)
  - Weight decreased [Recovered/Resolved]
  - Alopecia [Recovered/Resolved]
  - Helicobacter gastritis [Recovered/Resolved]
